FAERS Safety Report 9870610 (Version 2)
Quarter: 2014Q2

REPORT INFORMATION
  Report Type: Spontaneous
  Country: CA (occurrence: CA)
  Receive Date: 20140205
  Receipt Date: 20140408
  Transmission Date: 20141212
  Serious: Yes (Other)
  Sender: FDA-Public Use
  Company Number: CA-SA-2014SA014177

PATIENT
  Age: 27 Year
  Sex: Female

DRUGS (1)
  1. TUBERSOL [Suspect]
     Indication: TUBERCULIN TEST
     Dosage: DOSAGE FORM: SOLUTION INTRADERMAL
     Route: 023
     Dates: start: 20130709, end: 20130709

REACTIONS (3)
  - Altered state of consciousness [Unknown]
  - Convulsion [Unknown]
  - Malaise [Unknown]
